FAERS Safety Report 4290331-0 (Version None)
Quarter: 2004Q1

REPORT INFORMATION
  Report Type: 
  Country: None (occurrence: None)
  Receive Date: 20040209
  Receipt Date: 20031202
  Transmission Date: 20041129
  Serious: Yes (Hospitalization)
  Sender: FDA-Public Use
  Company Number: MEDI-0001368

PATIENT
  Sex: Male

DRUGS (1)
  1. ETHYOL [Suspect]
     Indication: RADIOTHERAPY
     Dosage: 500 MG, SUBCUTANEOUS
     Route: 058

REACTIONS (3)
  - MUCOSAL INFLAMMATION [None]
  - PYREXIA [None]
  - RASH [None]
